FAERS Safety Report 5523520-5 (Version None)
Quarter: 2007Q4

REPORT INFORMATION
  Report Type: 
  Country: None (occurrence: None)
  Receive Date: 20071119
  Receipt Date: 20071119
  Transmission Date: 20080405
  Serious: Yes (Other)
  Sender: FDA-Public Use
  Company Number: None

PATIENT
  Sex: Male

DRUGS (3)
  1. VANCOMYCIN [Suspect]
  2. CLINDAMYCIN HCL [Suspect]
  3. ZOSYN [Suspect]

REACTIONS (1)
  - PYREXIA [None]
